FAERS Safety Report 5862345-8 (Version None)
Quarter: 2008Q3

REPORT INFORMATION
  Report Type: 
  Country: None (occurrence: None)
  Receive Date: 20080826
  Receipt Date: 20080812
  Transmission Date: 20090109
  Serious: Yes (Hospitalization)
  Sender: FDA-Public Use
  Company Number: 003976

PATIENT
  Age: 46 Year
  Sex: Male

DRUGS (5)
  1. BUSULFEX [Suspect]
     Indication: STEM CELL TRANSPLANT
     Dosage: 40 ML
     Route: 042
     Dates: start: 20070223, end: 20070224
  2. FLUDARABINE PHOSPHATE [Concomitant]
  3. VALPROATE SODIUM [Concomitant]
  4. METHOTREXATE [Concomitant]
  5. TACROLIMUS [Concomitant]

REACTIONS (10)
  - ACUTE GRAFT VERSUS HOST DISEASE [None]
  - ANOREXIA [None]
  - DIARRHOEA [None]
  - ENTEROCOLITIS [None]
  - HYPONATRAEMIA [None]
  - MALAISE [None]
  - NAUSEA [None]
  - RENAL FAILURE ACUTE [None]
  - STOMATITIS [None]
  - VOMITING [None]
